FAERS Safety Report 8479643-4 (Version None)
Quarter: 2012Q2

REPORT INFORMATION
  Report Type: 
  Country: None (occurrence: None)
  Receive Date: 20120629
  Receipt Date: 20120625
  Transmission Date: 20120825
  Serious: No
  Sender: FDA-Public Use
  Company Number: US-PFIZER INC-2012152519

PATIENT
  Sex: Female

DRUGS (2)
  1. CELEBREX [Suspect]
     Dosage: UNK
     Dates: start: 20090911
  2. LYRICA [Suspect]
     Dosage: UNK
     Dates: start: 20090911

REACTIONS (1)
  - VISUAL IMPAIRMENT [None]
